FAERS Safety Report 10972801 (Version 2)
Quarter: 2015Q2

REPORT INFORMATION
  Report Type: Spontaneous
  Country: JP (occurrence: JP)
  Receive Date: 20150331
  Receipt Date: 20150427
  Transmission Date: 20150821
  Serious: Yes (Hospitalization, Other)
  Sender: FDA-Public Use
  Company Number: JP-009507513-1503JPN013225

PATIENT
  Age: 39 Year
  Sex: Male
  Weight: 55 kg

DRUGS (21)
  1. BELSOMRA [Suspect]
     Active Substance: SUVOREXANT
     Dosage: 520 MG, QD
     Dates: start: 20150305, end: 20150305
  2. LANDSEN [Suspect]
     Active Substance: CLONAZEPAM
     Indication: INSOMNIA
     Dosage: 1 MG, QD
     Route: 048
     Dates: start: 201308
  3. QUETIAPINE FUMARATE. [Suspect]
     Active Substance: QUETIAPINE FUMARATE
     Indication: INSOMNIA
     Dosage: 600 MG, QD BEFORE BEDTIME
     Route: 048
  4. RISPERIDONE. [Suspect]
     Active Substance: RISPERIDONE
     Indication: RESTLESSNESS
     Dosage: 1 ML, AS NEEDED
     Route: 048
  5. PANTOSIN [Concomitant]
     Active Substance: PANTETHINE
     Indication: CONSTIPATION
     Dosage: 200 MG, BID
     Route: 048
     Dates: start: 201308
  6. DEPAS [Suspect]
     Active Substance: ETIZOLAM
     Indication: INSOMNIA
     Dosage: 2 MG, PRN
     Route: 048
     Dates: start: 201308
  7. FLUNITRAZEPAM [Suspect]
     Active Substance: FLUNITRAZEPAM
     Indication: INSOMNIA
     Dosage: 2 MG, QD BEFORE BEDTIME
     Route: 048
  8. HIRNAMIN (LEVOMEPROMAZINE MALEATE) [Suspect]
     Active Substance: LEVOMEPROMAZINE MALEATE
     Dosage: 5 MG, AS NEEDED
     Route: 048
     Dates: start: 201308
  9. BELSOMRA [Suspect]
     Active Substance: SUVOREXANT
     Indication: INSOMNIA
     Dosage: 20 MG, QD
     Route: 048
     Dates: start: 201411
  10. LANDSEN [Suspect]
     Active Substance: CLONAZEPAM
     Dosage: 0.5 MG, PRN
     Route: 048
  11. LANDSEN [Suspect]
     Active Substance: CLONAZEPAM
     Dosage: 21.5 MG, QD
     Route: 048
     Dates: start: 20150305, end: 20150305
  12. FLUNITRAZEPAM [Suspect]
     Active Substance: FLUNITRAZEPAM
     Dosage: 26 MG, QD
     Route: 048
     Dates: start: 20150305, end: 20150305
  13. DEPAS [Suspect]
     Active Substance: ETIZOLAM
     Dosage: 40 MG, QD
     Route: 048
     Dates: start: 20150305, end: 20150305
  14. RISPERIDONE. [Suspect]
     Active Substance: RISPERIDONE
     Dosage: 26 ML, QD
     Route: 048
     Dates: start: 20150305, end: 20150305
  15. HIRNAMIN (LEVOMEPROMAZINE MALEATE) [Suspect]
     Active Substance: LEVOMEPROMAZINE MALEATE
     Indication: INSOMNIA
     Dosage: 50 MG, QD BEFORE BEDTIME
     Route: 048
     Dates: start: 201308
  16. HIRNAMIN (LEVOMEPROMAZINE MALEATE) [Suspect]
     Active Substance: LEVOMEPROMAZINE MALEATE
     Dosage: 22050 MG, QD
     Route: 048
     Dates: start: 20150305, end: 20150305
  17. QUETIAPINE FUMARATE. [Suspect]
     Active Substance: QUETIAPINE FUMARATE
     Dosage: 2600 MG, QD
     Route: 048
     Dates: start: 20150305, end: 20150305
  18. RISPERIDONE. [Suspect]
     Active Substance: RISPERIDONE
     Indication: INSOMNIA
     Dosage: 4 ML, QD, BEFORE BEDTIME
     Route: 048
  19. HIRNAMIN (LEVOMEPROMAZINE MALEATE) [Suspect]
     Active Substance: LEVOMEPROMAZINE MALEATE
     Dosage: 10 MG, TID
     Route: 048
     Dates: start: 201308
  20. RISPERIDONE. [Suspect]
     Active Substance: RISPERIDONE
     Dosage: 2 ML, BID
     Route: 048
  21. MAGMITT [Concomitant]
     Active Substance: MAGNESIUM OXIDE
     Indication: CONSTIPATION
     Dosage: 1000 MG, BID
     Route: 048
     Dates: start: 201308

REACTIONS (9)
  - Pneumonia [Recovering/Resolving]
  - Aortic valve incompetence [Recovering/Resolving]
  - Rhabdomyolysis [Recovering/Resolving]
  - Neuroleptic malignant syndrome [Recovering/Resolving]
  - Cardiac failure congestive [Recovering/Resolving]
  - Altered state of consciousness [Recovering/Resolving]
  - Vomiting [Unknown]
  - Suicide attempt [Recovering/Resolving]
  - Overdose [Unknown]

NARRATIVE: CASE EVENT DATE: 20150305
